FAERS Safety Report 18397574 (Version 1)
Quarter: 2020Q4

REPORT INFORMATION
  Report Type: Spontaneous
  Country: US (occurrence: US)
  Receive Date: 20201018
  Receipt Date: 20201018
  Transmission Date: 20210114
  Serious: No
  Sender: FDA-Public Use
  Company Number: None

PATIENT
  Age: 35 Year
  Sex: Female
  Weight: 90.45 kg

DRUGS (5)
  1. METRONIDAZOLE VAGINAL GEL USP [Suspect]
     Active Substance: METRONIDAZOLE
     Indication: VAGINAL INFECTION
     Dosage: ?          QUANTITY:1 APPLICATORFUL;?
     Route: 067
  2. HYDROCHLOROTHIAZIDE. [Concomitant]
     Active Substance: HYDROCHLOROTHIAZIDE
  3. METOPROLOL. [Concomitant]
     Active Substance: METOPROLOL
  4. BLOOD PRESSURE MONITOR [Concomitant]
  5. GLASSES [Concomitant]

REACTIONS (2)
  - Vaginal haemorrhage [None]
  - Vaginal discharge [None]

NARRATIVE: CASE EVENT DATE: 20201018
